FAERS Safety Report 4364260-8 (Version None)
Quarter: 2004Q2

REPORT INFORMATION
  Report Type: 
  Country: None (occurrence: None)
  Receive Date: 20040525
  Receipt Date: 20020904
  Transmission Date: 20050107
  Serious: Yes (Disabling)
  Sender: FDA-Public Use
  Company Number: US-MERCK-0209USA00419

PATIENT
  Age: 51 Year
  Sex: Female
  Weight: 75 kg

DRUGS (11)
  1. FOSAMAX [Concomitant]
     Route: 048
     Dates: start: 19990501
  2. VALIUM [Concomitant]
     Indication: INSOMNIA
     Route: 065
  3. NEURONTIN [Concomitant]
     Route: 065
     Dates: end: 20000901
  4. NEURONTIN [Concomitant]
     Route: 065
     Dates: end: 20000901
  5. NEURONTIN [Concomitant]
     Route: 065
     Dates: end: 20000901
  6. GLUCOSAMINE [Concomitant]
     Route: 065
  7. NITROSTAT [Concomitant]
     Indication: CHEST PAIN
     Route: 065
  8. EVISTA [Concomitant]
     Indication: HORMONE LEVEL ABNORMAL
     Route: 065
     Dates: start: 19981101, end: 20020827
  9. VIOXX [Suspect]
     Indication: NECK PAIN
     Route: 048
     Dates: start: 20000926, end: 20001010
  10. VIOXX [Suspect]
     Route: 048
     Dates: start: 20001011, end: 20010612
  11. VALTREX [Concomitant]
     Route: 065

REACTIONS (25)
  - ANAEMIA [None]
  - ARTHROPOD BITE [None]
  - ARTHROPOD STING [None]
  - BURSITIS [None]
  - CHEST PAIN [None]
  - CHRONIC SINUSITIS [None]
  - CONJUNCTIVITIS [None]
  - CONSTIPATION [None]
  - CORONARY ARTERY DISEASE [None]
  - DYSPEPSIA [None]
  - FRACTURE NONUNION [None]
  - GENERALISED ANXIETY DISORDER [None]
  - INFLUENZA [None]
  - INJURY [None]
  - JOINT SPRAIN [None]
  - LIBIDO DECREASED [None]
  - MULTIPLE FRACTURES [None]
  - OEDEMA PERIPHERAL [None]
  - OSTEOPOROSIS [None]
  - PANIC DISORDER [None]
  - ROAD TRAFFIC ACCIDENT [None]
  - SEBACEOUS HYPERPLASIA [None]
  - THORACIC OUTLET SYNDROME [None]
  - VIRAL PHARYNGITIS [None]
  - WEIGHT INCREASED [None]
